FAERS Safety Report 8351143-1 (Version None)
Quarter: 2012Q2

REPORT INFORMATION
  Report Type: 
  Country: None (occurrence: None)
  Receive Date: 20120510
  Receipt Date: 20120503
  Transmission Date: 20120825
  Serious: Yes (Other)
  Sender: FDA-Public Use
  Company Number: US-JNJFOC-20120507020

PATIENT
  Age: 23 Year
  Sex: Female
  Weight: 67.13 kg

DRUGS (3)
  1. ZYRTEC [Suspect]
     Route: 048
  2. CETIRIZINE HYDROCHLORIDE [Suspect]
     Indication: MULTIPLE ALLERGIES
     Dosage: 1 TABLET DAILY FOR ABOUT 4 YEARS,
     Route: 048
     Dates: start: 20080101, end: 20120502
  3. ZYRTEC [Suspect]
     Indication: MULTIPLE ALLERGIES
     Dosage: 1 TABLET DAILY FOR ABOUT 4 YEARS,
     Route: 048
     Dates: start: 20080101, end: 20120502

REACTIONS (7)
  - WEIGHT DECREASED [None]
  - POLYP [None]
  - FAECES DISCOLOURED [None]
  - ABDOMINAL PAIN UPPER [None]
  - CHOLELITHIASIS [None]
  - RECTAL HAEMORRHAGE [None]
  - URINARY TRACT INFECTION [None]
